FAERS Safety Report 19983401 (Version 1)
Quarter: 2021Q4

REPORT INFORMATION
  Report Type: Spontaneous
  Country: US (occurrence: US)
  Receive Date: 20211021
  Receipt Date: 20211021
  Transmission Date: 20220303
  Serious: No
  Sender: FDA-Public Use
  Company Number: US-GLAXOSMITHKLINE-US2021212443

PATIENT
  Sex: Female

DRUGS (1)
  1. BENLYSTA [Suspect]
     Active Substance: BELIMUMAB
     Indication: Connective tissue disorder
     Dosage: 200 MG

REACTIONS (3)
  - Exposure via skin contact [Unknown]
  - Incorrect dose administered [Unknown]
  - Product complaint [Unknown]
